FAERS Safety Report 12613715 (Version 1)
Quarter: 2016Q3

REPORT INFORMATION
  Report Type: Spontaneous
  Country: US (occurrence: None)
  Receive Date: 20160801
  Receipt Date: 20160801
  Transmission Date: 20161109
  Serious: Yes (Hospitalization, Other)
  Sender: FDA-Public Use
  Company Number: None

PATIENT
  Age: 45 Year
  Sex: Male
  Weight: 86.18 kg

DRUGS (3)
  1. FLUVOXAMINE MALEATE. [Suspect]
     Active Substance: FLUVOXAMINE MALEATE
     Indication: ANXIETY
     Dates: start: 20160708, end: 20160729
  2. ALKA-SELTZER [Suspect]
     Active Substance: ANHYDROUS CITRIC ACID\ASPIRIN\SODIUM BICARBONATE
     Indication: DRUG INTERACTION
     Dates: start: 20160708, end: 20160729
  3. LUVOX [Concomitant]
     Active Substance: FLUVOXAMINE MALEATE

REACTIONS (3)
  - Hallucination [None]
  - Drug interaction [None]
  - Headache [None]

NARRATIVE: CASE EVENT DATE: 20160728
